FAERS Safety Report 8514514-6 (Version None)
Quarter: 2012Q3

REPORT INFORMATION
  Report Type: 
  Country: None (occurrence: None)
  Receive Date: 20120717
  Receipt Date: 20120712
  Transmission Date: 20120928
  Serious: Yes (Other)
  Sender: FDA-Public Use
  Company Number: US-PFIZER INC-2012142385

PATIENT
  Sex: Female
  Weight: 46 kg

DRUGS (4)
  1. ATENOLOL [Concomitant]
     Dosage: SPLITTING 25MG, DAILY
     Route: 048
  2. SYNTHROID [Suspect]
     Indication: HYPOTHYROIDISM
     Dosage: 100 UG, 1X/DAY
     Dates: end: 20120101
  3. LEVOTHYROXINE SODIUM [Suspect]
     Indication: HYPOTHYROIDISM
     Dosage: 100 UG, 1X/DAY
     Dates: start: 20120101
  4. LEVOXYL [Suspect]
     Indication: HYPOTHYROIDISM
     Dosage: 100 UG, 1X/DAY
     Dates: start: 20120101, end: 20120101

REACTIONS (5)
  - BLOOD CHOLESTEROL INCREASED [None]
  - AUTOIMMUNE DISORDER [None]
  - CATARACT [None]
  - VITAMIN B12 DECREASED [None]
  - VITAMIN D DECREASED [None]
